FAERS Safety Report 10430357 (Version 1)
Quarter: 2014Q3

REPORT INFORMATION
  Report Type: Spontaneous
  Country: US (occurrence: None)
  Receive Date: 20140903
  Receipt Date: 20140903
  Transmission Date: 20150326
  Serious: No
  Sender: FDA-Public Use
  Company Number: None

PATIENT
  Age: 63 Year
  Sex: Female
  Weight: 55.34 kg

DRUGS (1)
  1. GENERIC CONCERTA [Suspect]
     Active Substance: METHYLPHENIDATE HYDROCHLORIDE
     Indication: ATTENTION DEFICIT/HYPERACTIVITY DISORDER
     Dosage: 1 PER DAY  ONCE DAILY TAKEN BY MOUTH
     Route: 048
     Dates: start: 20140830, end: 20140902

REACTIONS (4)
  - Product quality issue [None]
  - Disturbance in attention [None]
  - Drug ineffective [None]
  - Feeling jittery [None]
